FAERS Safety Report 8570191-X (Version None)
Quarter: 2012Q3

REPORT INFORMATION
  Report Type: 
  Country: None (occurrence: None)
  Receive Date: 20120803
  Receipt Date: 20120726
  Transmission Date: 20120928
  Serious: Yes (Other)
  Sender: FDA-Public Use
  Company Number: PHHY2012KR064448

PATIENT
  Age: 80 Year
  Sex: Female

DRUGS (1)
  1. AMLODIPINE [Suspect]
     Indication: HYPERTENSION

REACTIONS (7)
  - PRURITUS [None]
  - RASH ERYTHEMATOUS [None]
  - SKIN PLAQUE [None]
  - SKIN LESION [None]
  - PEMPHIGOID [None]
  - PAPULE [None]
  - BLISTER [None]
